FAERS Safety Report 25896639 (Version 1)
Quarter: 2025Q4

REPORT INFORMATION
  Report Type: Spontaneous
  Country: US (occurrence: US)
  Receive Date: 20251008
  Receipt Date: 20251008
  Transmission Date: 20260118
  Serious: Yes (Other)
  Sender: DR REDDYS
  Company Number: US-DRL-USA-USA/2025/10/015236

PATIENT
  Sex: Male

DRUGS (6)
  1. METHAMPHETAMINE [Suspect]
     Active Substance: METHAMPHETAMINE
     Indication: Product used for unknown indication
  2. MORPHINE [Suspect]
     Active Substance: MORPHINE
     Indication: Pain prophylaxis
  3. FENTANYL [Suspect]
     Active Substance: FENTANYL
     Indication: Product used for unknown indication
  4. KETOROLAC [Concomitant]
     Active Substance: KETOROLAC TROMETHAMINE
     Indication: Pain prophylaxis
  5. CELECOXIB [Concomitant]
     Active Substance: CELECOXIB
     Indication: Pain prophylaxis
  6. GABAPENTIN [Concomitant]
     Active Substance: GABAPENTIN
     Indication: Pain prophylaxis

REACTIONS (1)
  - Substance use disorder [Unknown]
